FAERS Safety Report 7912891-8 (Version None)
Quarter: 2011Q4

REPORT INFORMATION
  Report Type: 
  Country: None (occurrence: None)
  Receive Date: 20111114
  Receipt Date: 20111111
  Transmission Date: 20120403
  Serious: Yes (Other)
  Sender: FDA-Public Use
  Company Number: JP-PFIZER INC-2011245313

PATIENT

DRUGS (4)
  1. LEVOTHYROXINE SODIUM [Concomitant]
  2. CALFINA [Concomitant]
  3. LIPITOR [Suspect]
     Dosage: 5 MG, DAILY
     Route: 063
     Dates: start: 20110818
  4. GLORIAMIN [Concomitant]

REACTIONS (2)
  - DYSKINESIA [None]
  - EXPOSURE DURING BREAST FEEDING [None]
